FAERS Safety Report 17519298 (Version 1)
Quarter: 2020Q1

REPORT INFORMATION
  Report Type: Spontaneous
  Country: US (occurrence: US)
  Receive Date: 20200310
  Receipt Date: 20200310
  Transmission Date: 20200409
  Serious: No
  Sender: FDA-Public Use
  Company Number: US-ALLERGAN-1917596US

PATIENT
  Age: 68 Year
  Sex: Female

DRUGS (1)
  1. ESTRACE [Suspect]
     Active Substance: ESTRADIOL
     Indication: VULVOVAGINAL DRYNESS
     Dosage: 1 G,3 TIMES PER WEEK
     Route: 067
     Dates: start: 201901

REACTIONS (1)
  - Vulvovaginal burning sensation [Not Recovered/Not Resolved]
